FAERS Safety Report 9364149 (Version 1)
Quarter: 2013Q2

REPORT INFORMATION
  Report Type: Spontaneous
  Country: US (occurrence: US)
  Receive Date: 20130624
  Receipt Date: 20130624
  Transmission Date: 20140414
  Serious: No
  Sender: FDA-Public Use
  Company Number: US-MYLANLABS-2012S1021911

PATIENT
  Age: 54 Year
  Sex: Female
  Weight: 78.02 kg

DRUGS (6)
  1. CYCLOBENZAPRINE HYDROCHLORIDE [Suspect]
     Indication: MUSCLE SPASMS
     Dates: start: 20121003
  2. NAPROSYN [Concomitant]
     Indication: BACK PAIN
  3. CALCIUM [Concomitant]
  4. CITALOPRAM [Concomitant]
     Indication: DEPRESSION
  5. PANTOPRAZOLE [Concomitant]
     Indication: GASTROOESOPHAGEAL REFLUX DISEASE
     Dates: start: 201208
  6. TRAMADOL [Concomitant]
     Indication: BACK PAIN

REACTIONS (1)
  - Feeling abnormal [Not Recovered/Not Resolved]
